FAERS Safety Report 7112271-1 (Version None)
Quarter: 2010Q4

REPORT INFORMATION
  Report Type: 
  Country: None (occurrence: None)
  Receive Date: 20101119
  Receipt Date: 20100810
  Transmission Date: 20110411
  Serious: No
  Sender: FDA-Public Use
  Company Number: A0860222A

PATIENT
  Age: 59 Year
  Sex: Male

DRUGS (8)
  1. AVODART [Suspect]
     Dosage: .5MG PER DAY
     Route: 048
  2. FLUTICASONE PROPIONATE [Concomitant]
  3. FUROSEMIDE [Concomitant]
  4. DOXAZOSIN MESYLATE [Concomitant]
  5. HCT [Concomitant]
  6. POTASSIUM CHLORIDE [Concomitant]
  7. NAPROXEN [Concomitant]
  8. METHADONE HCL [Concomitant]

REACTIONS (2)
  - DRUG INEFFECTIVE [None]
  - PRODUCT QUALITY ISSUE [None]
